FAERS Safety Report 7619547-X (Version None)
Quarter: 2011Q3

REPORT INFORMATION
  Report Type: 
  Country: None (occurrence: None)
  Receive Date: 20110719
  Receipt Date: 20110707
  Transmission Date: 20111222
  Serious: Yes (Hospitalization)
  Sender: FDA-Public Use
  Company Number: JP-JNJFOC-20110406568

PATIENT
  Sex: Male
  Weight: 60 kg

DRUGS (23)
  1. GOLIMUMAB [Suspect]
     Route: 058
     Dates: start: 20110331
  2. SIGMART [Concomitant]
     Indication: CARDIAC FAILURE CHRONIC
     Route: 048
     Dates: start: 20100218, end: 20100729
  3. SIGMART [Concomitant]
     Route: 048
     Dates: start: 20100730, end: 20100812
  4. SIGMART [Concomitant]
     Route: 048
     Dates: start: 20100813, end: 20110411
  5. ASPIRIN DIALUMINATE [Concomitant]
     Route: 048
     Dates: start: 20110421
  6. FRANDOL [Concomitant]
     Route: 062
     Dates: start: 20110428, end: 20110516
  7. ASPIRIN DIALUMINATE [Concomitant]
     Indication: ISCHAEMIC HEART DISEASE PROPHYLAXIS
     Route: 048
     Dates: end: 20110411
  8. EPADEL S [Concomitant]
     Route: 048
     Dates: start: 20110423, end: 20110516
  9. GOLIMUMAB [Suspect]
     Indication: RHEUMATOID ARTHRITIS
     Route: 058
     Dates: start: 20090326
  10. METHOTREXATE [Suspect]
     Indication: RHEUMATOID ARTHRITIS
     Route: 048
     Dates: start: 20110121, end: 20110331
  11. ASPIRIN DIALUMINATE [Concomitant]
     Indication: MYOCARDIAL ISCHAEMIA
     Route: 048
     Dates: start: 20110421
  12. ASPIRIN DIALUMINATE [Concomitant]
     Route: 048
     Dates: end: 20110411
  13. SIGMART [Concomitant]
     Route: 048
     Dates: start: 20110420
  14. FOLIC ACID [Concomitant]
     Indication: PROPHYLAXIS
     Route: 048
     Dates: start: 20110109, end: 20110331
  15. MOBIC [Concomitant]
     Indication: RHEUMATOID ARTHRITIS
     Route: 048
     Dates: start: 20061122, end: 20110331
  16. FAMOTIDINE [Concomitant]
     Indication: PROPHYLAXIS AGAINST GASTROINTESTINAL ULCER
     Route: 048
     Dates: end: 20110411
  17. ASPIRIN DIALUMINATE [Concomitant]
     Indication: MYOCARDIAL INFARCTION
     Route: 048
     Dates: end: 20110411
  18. EPOGEN [Concomitant]
     Indication: ANAEMIA
     Route: 058
     Dates: start: 20110427
  19. FERRICON [Concomitant]
     Indication: ANAEMIA
     Route: 042
     Dates: start: 20110513
  20. ASPIRIN DIALUMINATE [Concomitant]
     Route: 048
     Dates: start: 20110421
  21. ADALAT [Concomitant]
     Route: 048
     Dates: start: 20110420, end: 20110513
  22. PRAVASTATIN SODIUM [Concomitant]
     Route: 048
     Dates: start: 20110428, end: 20110513
  23. CARVEDILOL [Concomitant]
     Indication: CARDIAC FAILURE CHRONIC
     Route: 048
     Dates: start: 20110506, end: 20110513

REACTIONS (5)
  - RENAL FAILURE ACUTE [None]
  - NEUTROPENIA [None]
  - UROSEPSIS [None]
  - MYOCARDIAL ISCHAEMIA [None]
  - MYELODYSPLASTIC SYNDROME [None]
